FAERS Safety Report 9080059 (Version 1)
Quarter: 2013Q1

REPORT INFORMATION
  Report Type: Spontaneous
  Country: TW (occurrence: TW)
  Receive Date: 20130218
  Receipt Date: 20130218
  Transmission Date: 20140127
  Serious: Yes (Other)
  Sender: FDA-Public Use
  Company Number: PHHY2013TW014067

PATIENT
  Age: 64 Year
  Sex: Male

DRUGS (3)
  1. 5-FLUOROURACIL [Suspect]
     Indication: COLON CANCER METASTATIC
  2. FOLINIC ACID [Suspect]
     Indication: COLON CANCER METASTATIC
  3. IRINOTECAN [Suspect]
     Indication: COLON CANCER METASTATIC

REACTIONS (1)
  - Carcinoembryonic antigen increased [Unknown]
